FAERS Safety Report 6425174-2 (Version None)
Quarter: 2009Q4

REPORT INFORMATION
  Report Type: 
  Country: None (occurrence: None)
  Receive Date: 20091103
  Receipt Date: 20091029
  Transmission Date: 20100525
  Serious: Yes (Death, Hospitalization)
  Sender: FDA-Public Use
  Company Number: GB-CELGENEUS-167-C5013-09090003

PATIENT
  Sex: Male
  Weight: 63 kg

DRUGS (20)
  1. CC-5013 [Suspect]
     Indication: MULTIPLE MYELOMA
     Route: 048
     Dates: start: 20090522
  2. CC-5013 [Suspect]
     Route: 048
     Dates: start: 20090731, end: 20090828
  3. CC-5013 [Suspect]
     Route: 048
     Dates: start: 20090703
  4. DEXAMETHASONE [Suspect]
     Indication: MULTIPLE MYELOMA
     Route: 048
     Dates: start: 20090522, end: 20090828
  5. EPOGEN [Concomitant]
     Indication: ANAEMIA
     Route: 058
     Dates: start: 20090507, end: 20090827
  6. SODIUM CLODRONATE [Concomitant]
     Indication: PROPHYLAXIS
     Route: 048
     Dates: start: 20090703, end: 20090827
  7. AMOXICILLIN [Concomitant]
     Indication: INFECTION
     Route: 048
     Dates: start: 20090803, end: 20090810
  8. AMOXICILLIN [Concomitant]
     Indication: CELLULITIS
  9. FLUCLOXACILLIN [Concomitant]
     Indication: INFECTION
     Route: 048
     Dates: start: 20090803, end: 20090810
  10. FLUCLOXACILLIN [Concomitant]
     Indication: CELLULITIS
  11. WARFARIN SODIUM [Concomitant]
     Indication: THROMBOSIS PROPHYLAXIS
     Route: 048
     Dates: start: 20090306, end: 20090908
  12. OMEPRAZOLE [Concomitant]
     Indication: PROPHYLAXIS
     Route: 048
     Dates: start: 20090522, end: 20090929
  13. BACTROBAN [Concomitant]
     Route: 061
     Dates: start: 20090429, end: 20090827
  14. VITAMIN K TAB [Concomitant]
     Indication: DRUG USE FOR UNKNOWN INDICATION
     Route: 051
     Dates: start: 20090809, end: 20090809
  15. DIGOXIN [Concomitant]
     Indication: DRUG USE FOR UNKNOWN INDICATION
     Route: 048
     Dates: start: 20090810
  16. FRUSEMIDE [Concomitant]
     Indication: DRUG USE FOR UNKNOWN INDICATION
     Route: 048
     Dates: start: 20090810
  17. VENOFER [Concomitant]
     Indication: ANAEMIA
     Route: 051
     Dates: start: 20090713, end: 20090811
  18. DIPROBASE [Concomitant]
     Indication: RASH
     Route: 061
     Dates: start: 20090814, end: 20090827
  19. ZOPICLONE [Concomitant]
     Indication: INSOMNIA
     Route: 048
     Dates: start: 20090711, end: 20090724
  20. ACETAMINOPHEN [Concomitant]
     Indication: PAIN
     Route: 048
     Dates: start: 20090702, end: 20090720

REACTIONS (4)
  - CONVULSION [None]
  - MULTIPLE MYELOMA [None]
  - RASH [None]
  - RENAL FAILURE ACUTE [None]
